FAERS Safety Report 5357891-X (Version None)
Quarter: 2007Q2

REPORT INFORMATION
  Report Type: 
  Country: None (occurrence: None)
  Receive Date: 20070612
  Receipt Date: 20070529
  Transmission Date: 20071010
  Serious: Yes (Other)
  Sender: FDA-Public Use
  Company Number: 4543

PATIENT
  Age: 27 Year
  Sex: Female

DRUGS (3)
  1. AMNESTEEM [Suspect]
     Indication: ACNE
     Dosage: 40 MG, QAM, PO
     Route: 048
     Dates: start: 20070302, end: 20070427
  2. AMNESTEEM [Suspect]
     Dosage: 20 MG, QPM, PO
     Route: 048
     Dates: start: 20070302, end: 20070427
  3. YASMIN [Concomitant]

REACTIONS (3)
  - DRUG DOSE OMISSION [None]
  - DRUG EXPOSURE DURING PREGNANCY [None]
  - PREGNANCY ON ORAL CONTRACEPTIVE [None]
